FAERS Safety Report 5087737-9 (Version None)
Quarter: 2006Q3

REPORT INFORMATION
  Report Type: 
  Country: None (occurrence: None)
  Receive Date: 20060821
  Receipt Date: 20060807
  Transmission Date: 20061208
  Serious: Yes (Life-Threatening)
  Sender: FDA-Public Use
  Company Number: 2006070039

PATIENT
  Age: 51 Year
  Sex: Male
  Weight: 83.4619 kg

DRUGS (5)
  1. ASTELIN [Suspect]
     Indication: SEASONAL ALLERGY
     Dosage: 2 SP BID, IN   SEVERAL YEARS AGO
     Route: 055
  2. XANAX [Concomitant]
  3. SINGULAIR [Concomitant]
  4. LEVOTHROID [Concomitant]
  5. ALBUTEROL [Concomitant]

REACTIONS (1)
  - GRAND MAL CONVULSION [None]
